FAERS Safety Report 22182703 (Version 2)
Quarter: 2023Q2

REPORT INFORMATION
  Report Type: Spontaneous
  Country: KR (occurrence: KR)
  Receive Date: 20230406
  Receipt Date: 20230424
  Transmission Date: 20230721
  Serious: Yes (Hospitalization)
  Sender: FDA-Public Use
  Company Number: KR-ACERUSPHRM-2023-KR-000001

PATIENT
  Age: 82 Year
  Sex: Male

DRUGS (21)
  1. NATESTO [Suspect]
     Active Substance: TESTOSTERONE
     Indication: Hypogonadism
     Route: 045
     Dates: start: 20220623
  2. inno.N CEFOTAXIME [Concomitant]
     Indication: Proctitis
     Route: 042
     Dates: start: 20221212, end: 20221212
  3. VITAMINS [Concomitant]
     Active Substance: VITAMINS
     Indication: Proctitis
     Route: 042
     Dates: start: 20221213, end: 20221221
  4. PROPACETAMOL HYDROCHLORIDE [Concomitant]
     Active Substance: PROPACETAMOL HYDROCHLORIDE
     Indication: Proctitis
     Route: 042
     Dates: start: 20221213, end: 20221217
  5. JW NS [Concomitant]
     Indication: Proctitis
     Route: 042
     Dates: start: 20221213, end: 20221217
  6. Dicamax D [Concomitant]
     Indication: Vitamin D deficiency
  7. Nutriflex Peri 40 [Concomitant]
     Indication: Proctitis
     Route: 042
     Dates: start: 20221213, end: 20221221
  8. SYNTHROID [Concomitant]
     Active Substance: LEVOTHYROXINE SODIUM
     Route: 048
     Dates: start: 20120918
  9. TASNA [Concomitant]
     Indication: Proctitis
     Route: 048
     Dates: start: 20221219, end: 20221221
  10. Trestan [Concomitant]
     Indication: Proctitis
     Route: 048
     Dates: start: 20221215, end: 20221215
  11. HIROXON TAB [Concomitant]
     Indication: Pituitary tumour benign
     Route: 048
     Dates: start: 20141223
  12. FREAMINE III NOS [Concomitant]
     Active Substance: AMINO ACIDS
     Indication: Proctitis
     Route: 042
     Dates: start: 20221215, end: 20221215
  13. ADALAT [Concomitant]
     Active Substance: NIFEDIPINE
     Route: 048
     Dates: start: 20210413
  14. BANAN [Concomitant]
     Active Substance: CEFPODOXIME PROXETIL
     Indication: Proctitis
     Route: 048
     Dates: start: 20221215, end: 20221221
  15. NEBILET TAB [Concomitant]
     Indication: Hypertension
     Route: 048
     Dates: start: 20220118
  16. THIOCTACID HR TAB [Concomitant]
     Indication: Diabetes mellitus
     Route: 048
     Dates: start: 20190612, end: 20221225
  17. TRAJENTA TAB [Concomitant]
     Indication: Diabetes mellitus
     Route: 048
     Dates: start: 20150313
  18. CRESTOR TAB [Concomitant]
     Indication: Hyperlipidaemia
     Route: 048
     Dates: start: 20220118
  19. PROBIOTICS NOS [Concomitant]
     Active Substance: PROBIOTICS NOS
     Indication: Proctitis
     Route: 048
     Dates: start: 20221212, end: 20221221
  20. METRONIDAZOLE [Concomitant]
     Active Substance: METRONIDAZOLE
     Indication: Proctitis
     Route: 042
     Dates: start: 20221212, end: 20221212
  21. CEFTRIAXONE SODIUM [Concomitant]
     Active Substance: CEFTRIAXONE SODIUM
     Indication: Proctitis
     Route: 042
     Dates: start: 20221212, end: 20221221

REACTIONS (1)
  - Proctitis [Recovered/Resolved]

NARRATIVE: CASE EVENT DATE: 20221212
